FAERS Safety Report 4744964-5 (Version None)
Quarter: 2005Q3

REPORT INFORMATION
  Report Type: 
  Country: None (occurrence: None)
  Receive Date: 20050811
  Receipt Date: 20050803
  Transmission Date: 20060218
  Serious: Yes (Hospitalization)
  Sender: FDA-Public Use
  Company Number: 005352

PATIENT
  Age: 87 Year
  Sex: Female

DRUGS (12)
  1. DIAMOX [Suspect]
     Indication: INTRAOCULAR PRESSURE DECREASED
     Dosage: 500.00 MG, QD, ORAL
     Route: 048
     Dates: start: 20050705, end: 20050709
  2. ASPIRIN (E.C.) (ACETYLSALCYLIC ACID) [Suspect]
     Indication: CAROTID ARTERY OCCLUSION
     Dosage: 325.00 MG, QD, ORAL
     Route: 048
     Dates: end: 20050708
  3. COZAAR [Concomitant]
  4. TRIAMTERENE AND HYDROCHLOROTHIAZIDE [Concomitant]
  5. CENTRUM (VITAMINS NOS, MINERALS NOS) [Concomitant]
  6. EQUATE ANTACID TABLETS [Concomitant]
  7. SINGULAIR [Concomitant]
  8. PAXIL [Concomitant]
  9. LIPITOR [Concomitant]
  10. MAALOX (MAGNESIUM HYDROXIDE, ALUMINIUM HYDROXIDE GEL) [Concomitant]
  11. SIMETHICONE (SIMETICONE) [Concomitant]
  12. ADVAIR DISKUS (FLUTICASONE PROPIONATE, SALMETEROL XINAFOATE) [Concomitant]

REACTIONS (13)
  - ARTERIOVENOUS MALFORMATION [None]
  - BLOOD CREATININE INCREASED [None]
  - BLOOD MAGNESIUM DECREASED [None]
  - BLOOD POTASSIUM DECREASED [None]
  - BLOOD UREA INCREASED [None]
  - CONFUSIONAL STATE [None]
  - DEHYDRATION [None]
  - DUODENAL ULCER [None]
  - GASTROINTESTINAL HAEMORRHAGE [None]
  - HAEMATOCHEZIA [None]
  - HAEMOGLOBIN DECREASED [None]
  - HIATUS HERNIA [None]
  - SOMNOLENCE [None]
